FAERS Safety Report 6971529-7 (Version None)
Quarter: 2010Q3

REPORT INFORMATION
  Report Type: 
  Country: None (occurrence: None)
  Receive Date: 20100908
  Receipt Date: 20100830
  Transmission Date: 20110219
  Serious: Yes (Other)
  Sender: FDA-Public Use
  Company Number: US-AMGEN-QUU398997

PATIENT
  Sex: Female
  Weight: 78.5 kg

DRUGS (5)
  1. NPLATE [Suspect]
     Indication: IDIOPATHIC THROMBOCYTOPENIC PURPURA
     Route: 058
     Dates: start: 20090331
  2. LEVOXYL [Concomitant]
  3. ATENOLOL [Concomitant]
  4. ADVAIR DISKUS 100/50 [Concomitant]
  5. GLUCOSAMINE [Concomitant]
     Dates: end: 20091124

REACTIONS (5)
  - BREAST CANCER STAGE I [None]
  - DEEP VEIN THROMBOSIS [None]
  - JOINT SWELLING [None]
  - LIMB INJURY [None]
  - MALIGNANT BREAST LUMP REMOVAL [None]
